FAERS Safety Report 20258025 (Version 1)
Quarter: 2021Q4

REPORT INFORMATION
  Report Type: Spontaneous
  Country: US (occurrence: None)
  Receive Date: 20211229
  Receipt Date: 20211229
  Transmission Date: 20220303
  Serious: No
  Sender: FDA-Public Use
  Company Number: None

PATIENT
  Age: 50 Year
  Sex: Male
  Weight: 67.5 kg

DRUGS (11)
  1. FENOFIBRATE [Suspect]
     Active Substance: FENOFIBRATE
     Indication: Blood triglycerides increased
     Dosage: FREQUENCY : DAILY;?
     Route: 048
  2. CITALOPRAM [Concomitant]
     Active Substance: CITALOPRAM HYDROBROMIDE
  3. RISPERIDONE [Concomitant]
     Active Substance: RISPERIDONE
  4. AZATHIOPRINE [Concomitant]
     Active Substance: AZATHIOPRINE
  5. MESALAMINE [Concomitant]
     Active Substance: MESALAMINE
  6. TRAZODONE [Concomitant]
     Active Substance: TRAZODONE HYDROCHLORIDE
  7. CHOLESTYRAMINE [Concomitant]
     Active Substance: CHOLESTYRAMINE
  8. VITAMIN B COMPLEX [Concomitant]
     Active Substance: CYANOCOBALAMIN\DEXPANTHENOL\NIACINAMIDE\PYRIDOXINE HYDROCHLORIDE\RIBOFLAVIN 5^-PHOSPHATE SODIUM\THIA
  9. CALCIUM [Concomitant]
     Active Substance: CALCIUM
  10. VITAMIN D [Concomitant]
     Active Substance: VITAMIN D NOS
  11. MELATONIN [Concomitant]
     Active Substance: MELATONIN

REACTIONS (1)
  - Diarrhoea [None]

NARRATIVE: CASE EVENT DATE: 20210806
